FAERS Safety Report 14854468 (Version 1)
Quarter: 2018Q2

REPORT INFORMATION
  Report Type: Spontaneous
  Country: US (occurrence: US)
  Receive Date: 20180420
  Receipt Date: 20180420
  Transmission Date: 20180711
  Serious: Yes (Hospitalization)
  Sender: FDA-Public Use
  Company Number: None

PATIENT
  Age: 76 Year
  Sex: Male
  Weight: 77.1 kg

DRUGS (1)
  1. ERTAPENEM. [Suspect]
     Active Substance: ERTAPENEM SODIUM
     Indication: INFECTION
     Route: 042
     Dates: start: 20180323, end: 20180327

REACTIONS (1)
  - Seizure [None]

NARRATIVE: CASE EVENT DATE: 20180323
